FAERS Safety Report 4495350-7 (Version None)
Quarter: 2004Q4

REPORT INFORMATION
  Report Type: 
  Country: None (occurrence: None)
  Receive Date: 20041103
  Receipt Date: 20041020
  Transmission Date: 20050328
  Serious: Yes (Hospitalization)
  Sender: FDA-Public Use
  Company Number: 1997-UP-00407

PATIENT
  Age: 75 Year
  Sex: Female

DRUGS (11)
  1. PRAMIPEXOLE (PRAMIPEXOLE DIHYDROCHLORIDE) [Suspect]
     Indication: PARKINSON'S DISEASE
     Dosage: PO
     Route: 048
     Dates: start: 19970611, end: 19981122
  2. DYAZIDE [Concomitant]
  3. FELODIPINE [Concomitant]
  4. PREMPRO (PREMARIN;CYCRIN 14/14) [Concomitant]
  5. M.V.I. [Concomitant]
  6. VITAMINC [Concomitant]
  7. CORTISONE (CORTISONE) [Concomitant]
  8. RELAFEN [Suspect]
  9. CALTRATE (CALCIUM CARBONATE) [Concomitant]
  10. VITAMIN B COMPLEX CAP [Concomitant]
  11. VITAMIN E [Concomitant]

REACTIONS (2)
  - BASAL CELL CARCINOMA [None]
  - DIZZINESS [None]
